FAERS Safety Report 22221769 (Version 1)
Quarter: 2023Q2

REPORT INFORMATION
  Report Type: Spontaneous
  Country: US (occurrence: US)
  Receive Date: 20230418
  Receipt Date: 20230418
  Transmission Date: 20230722
  Serious: Yes (Other)
  Sender: FDA-Public Use
  Company Number: US-UROGEN PHARMA LTD.-2023-UGN-000035

PATIENT

DRUGS (4)
  1. JELMYTO [Suspect]
     Active Substance: MITOMYCIN
     Indication: Product used for unknown indication
     Dosage: ONE TIME PER WEEK (INSTILLATION)
     Route: 065
     Dates: start: 20230307, end: 20230307
  2. JELMYTO [Suspect]
     Active Substance: MITOMYCIN
     Dosage: ONE TIME PER WEEK (INSTILLATION)
     Route: 065
     Dates: start: 20230314, end: 20230314
  3. JELMYTO [Suspect]
     Active Substance: MITOMYCIN
     Dosage: ONE TIME PER WEEK (INSTILLATION)
     Route: 065
     Dates: start: 20230321, end: 20230321
  4. JELMYTO [Suspect]
     Active Substance: MITOMYCIN
     Dosage: ONE TIME PER WEEK (INSTILLATION)
     Route: 065
     Dates: start: 20230328, end: 20230328

REACTIONS (2)
  - Platelet count decreased [Unknown]
  - Fatigue [Unknown]

NARRATIVE: CASE EVENT DATE: 20230101
